FAERS Safety Report 9550786 (Version 1)
Quarter: 2013Q3

REPORT INFORMATION
  Report Type: Spontaneous
  Country: US (occurrence: US)
  Receive Date: 20130924
  Receipt Date: 20130924
  Transmission Date: 20140515
  Serious: No
  Sender: FDA-Public Use
  Company Number: US-SANOFI-AVENTIS-2013SA048093

PATIENT
  Age: 41 Year
  Sex: Female
  Weight: 62.59 kg

DRUGS (3)
  1. AUBAGIO [Suspect]
     Indication: MULTIPLE SCLEROSIS
     Route: 048
     Dates: start: 20130128
  2. LYRICA [Concomitant]
     Indication: NEURALGIA
     Dates: start: 2007
  3. CLARITIN [Concomitant]
     Indication: HYPERSENSITIVITY
     Dates: start: 2000

REACTIONS (3)
  - Gallbladder disorder [Not Recovered/Not Resolved]
  - Menstruation irregular [Recovered/Resolved]
  - Alopecia [Not Recovered/Not Resolved]
